FAERS Safety Report 7715165-3 (Version None)
Quarter: 2011Q3

REPORT INFORMATION
  Report Type: 
  Country: None (occurrence: None)
  Receive Date: 20110822
  Receipt Date: 20110805
  Transmission Date: 20111222
  Serious: Yes (Hospitalization)
  Sender: FDA-Public Use
  Company Number: 2011MA011395

PATIENT
  Age: 46 Year
  Sex: Female

DRUGS (3)
  1. DIAZEPAM [Suspect]
     Indication: PSYCHOTIC DISORDER
     Dosage: 3 X 1;IM
     Route: 030
  2. RISPERIDONE [Suspect]
     Indication: PSYCHOTIC DISORDER
     Dosage: 3 MG;QD;PO
     Route: 048
  3. HALOPERIDOL [Suspect]
     Indication: PSYCHOTIC DISORDER
     Dosage: 3 X1;IM
     Route: 030

REACTIONS (8)
  - PARANOIA [None]
  - NEUROLEPTIC MALIGNANT SYNDROME [None]
  - MASKED FACIES [None]
  - SOMNOLENCE [None]
  - TACHYCARDIA [None]
  - EXTRAPYRAMIDAL DISORDER [None]
  - HYPERTONIA [None]
  - HYPOKALAEMIA [None]
